FAERS Safety Report 9869180 (Version 2)
Quarter: 2014Q1

REPORT INFORMATION
  Report Type: Report from Study
  Country: DE (occurrence: DE)
  Receive Date: 20140205
  Receipt Date: 20140225
  Transmission Date: 20141002
  Serious: Yes (Death, Hospitalization)
  Sender: FDA-Public Use
  Company Number: DE-BRISTOL-MYERS SQUIBB COMPANY-20123634

PATIENT
  Age: 70 Year
  Sex: Female

DRUGS (18)
  1. ABATACEPT [Suspect]
     Dates: start: 201303, end: 20130613
  2. METHOTREXATE [Suspect]
     Dosage: 1DF: 15UNITS NOS
     Dates: end: 201307
  3. BISOPROLOL [Concomitant]
  4. AMLODIPINE [Concomitant]
  5. TORASEMIDE [Concomitant]
  6. PANTOZOL [Concomitant]
  7. GABAPENTIN [Concomitant]
  8. SIMVASTATIN [Concomitant]
  9. SPIRONOLACTONE [Concomitant]
  10. CHLORTALIDONE [Concomitant]
  11. METOCLOPRAMIDE [Concomitant]
  12. METHIONINE [Concomitant]
  13. CHOLECALCIFEROL [Concomitant]
  14. FOLIC ACID [Concomitant]
  15. FOSAMAX [Concomitant]
  16. FENTANYL PATCH [Concomitant]
  17. PRADAXA [Concomitant]
  18. FRAXIPARINE [Concomitant]

REACTIONS (4)
  - Multi-organ failure [Fatal]
  - Lower gastrointestinal haemorrhage [Unknown]
  - Gastritis haemorrhagic [Unknown]
  - Large intestinal ulcer [Unknown]
